FAERS Safety Report 7842910-9 (Version None)
Quarter: 2011Q4

REPORT INFORMATION
  Report Type: 
  Country: None (occurrence: None)
  Receive Date: 20111025
  Receipt Date: 20111012
  Transmission Date: 20120403
  Serious: Yes (Hospitalization, Other)
  Sender: FDA-Public Use
  Company Number: US-BAYER-2011-050483

PATIENT
  Age: 22 Year
  Sex: Female
  Weight: 70.295 kg

DRUGS (15)
  1. YAZ [Suspect]
     Indication: ACNE
     Dosage: UNK
     Dates: start: 20060101, end: 20070101
  2. PREDNISONE [Concomitant]
  3. METHADONE HCL [Concomitant]
  4. BENADRYL [Concomitant]
  5. MULTI-VITAMIN [Concomitant]
  6. PROBIOTICS [Concomitant]
  7. ZOFRAN [Concomitant]
  8. PERCOCET [Concomitant]
  9. YAZ [Suspect]
     Indication: PREMENSTRUAL SYNDROME
  10. MOTRIN [Concomitant]
  11. YAZ [Suspect]
     Indication: CONTRACEPTION
  12. FLONASE [Concomitant]
  13. YAZ [Suspect]
  14. ZYRTEC [Concomitant]
  15. DETROL LA [Concomitant]

REACTIONS (5)
  - RENAL DISORDER [None]
  - PAIN [None]
  - NEPHROLITHIASIS [None]
  - CHOLECYSTITIS CHRONIC [None]
  - GALLBLADDER DISORDER [None]
